FAERS Safety Report 14715338 (Version 4)
Quarter: 2018Q3

REPORT INFORMATION
  Report Type: Spontaneous
  Country: US (occurrence: US)
  Receive Date: 20180404
  Receipt Date: 20180709
  Transmission Date: 20181010
  Serious: No
  Sender: FDA-Public Use
  Company Number: US-PFIZER INC-2018135991

PATIENT
  Age: 10 Year
  Sex: Female
  Weight: 29.48 kg

DRUGS (4)
  1. GENOTROPIN [Suspect]
     Active Substance: SOMATROPIN
     Dosage: 1 MG, DAILY (7 DAYS PER WEEK)
     Dates: start: 201710
  2. GENOTROPIN [Suspect]
     Active Substance: SOMATROPIN
     Indication: GROWTH HORMONE DEFICIENCY
     Dosage: 1.0 MG, UNK
     Dates: start: 20170914
  3. GENOTROPIN [Suspect]
     Active Substance: SOMATROPIN
     Dosage: 1 MG, DAILY
  4. GENOTROPIN [Suspect]
     Active Substance: SOMATROPIN
     Dosage: 1.2 MG, DAILY
     Dates: start: 201801

REACTIONS (9)
  - Drug dose omission [Unknown]
  - Hormone level abnormal [Not Recovered/Not Resolved]
  - Headache [Unknown]
  - Weight decreased [Unknown]
  - Pain in extremity [Unknown]
  - Overdose [Unknown]
  - Device issue [Unknown]
  - Insulin-like growth factor increased [Unknown]
  - Weight increased [Unknown]

NARRATIVE: CASE EVENT DATE: 201710
